FAERS Safety Report 6522563-2 (Version None)
Quarter: 2009Q4

REPORT INFORMATION
  Report Type: 
  Country: None (occurrence: None)
  Receive Date: 20091230
  Receipt Date: 20091218
  Transmission Date: 20100525
  Serious: Yes (Hospitalization)
  Sender: FDA-Public Use
  Company Number: US-AMGEN-QUU367777

PATIENT
  Sex: Male
  Weight: 140.7 kg

DRUGS (6)
  1. ENBREL [Suspect]
     Indication: RHEUMATOID ARTHRITIS
     Route: 058
     Dates: start: 20010101, end: 20091001
  2. SULFASALAZINE [Concomitant]
     Route: 048
  3. METFORMIN [Concomitant]
  4. PREDNISONE [Concomitant]
  5. SULFASALAZINE [Concomitant]
  6. NAPRELAN [Concomitant]

REACTIONS (6)
  - ARTHRITIS [None]
  - INFLUENZA [None]
  - INJECTION SITE PAIN [None]
  - OSTEOARTHRITIS [None]
  - PNEUMONIA [None]
  - SINUSITIS [None]
